FAERS Safety Report 10157668 (Version 1)
Quarter: 2014Q2

REPORT INFORMATION
  Report Type: Spontaneous
  Country: US (occurrence: US)
  Receive Date: 20140507
  Receipt Date: 20140507
  Transmission Date: 20141212
  Serious: Yes (Death, Life-Threatening, Hospitalization, Other)
  Sender: FDA-Public Use
  Company Number: PHHY2014US052999

PATIENT
  Age: 39 Year
  Sex: Male

DRUGS (2)
  1. METOPROLOL [Suspect]
  2. DILTIAZEM [Suspect]

REACTIONS (8)
  - Death [Fatal]
  - Brain oedema [Unknown]
  - Unresponsive to stimuli [Unknown]
  - Cardiac arrest [Recovered/Resolved]
  - Toxicity to various agents [Unknown]
  - Pancreatitis [Unknown]
  - Hyperlipidaemia [Unknown]
  - Overdose [Unknown]
